FAERS Safety Report 21722838 (Version 1)
Quarter: 2022Q4

REPORT INFORMATION
  Report Type: Spontaneous
  Country: US (occurrence: None)
  Receive Date: 20221212
  Receipt Date: 20221212
  Transmission Date: 20230112
  Serious: No
  Sender: FDA-Public Use
  Company Number: None

PATIENT
  Sex: Male

DRUGS (1)
  1. HUMIRA [Suspect]
     Active Substance: ADALIMUMAB
     Indication: Iridocyclitis
     Dosage: OTHER QUANTITY : 4 PENS;?FREQUENCY : DAILY;?
     Route: 058
     Dates: start: 202211

REACTIONS (1)
  - Drug ineffective [None]
